FAERS Safety Report 26162824 (Version 1)
Quarter: 2025Q4

REPORT INFORMATION
  Report Type: Spontaneous
  Country: CN (occurrence: CN)
  Receive Date: 20251216
  Receipt Date: 20251216
  Transmission Date: 20260118
  Serious: Yes (Other)
  Sender: NOVARTIS
  Company Number: CN-002147023-NVSC2025CN190755

PATIENT
  Age: 81 Year
  Sex: Male

DRUGS (5)
  1. SACUBITRIL\VALSARTAN [Suspect]
     Active Substance: SACUBITRIL\VALSARTAN
     Indication: Blood pressure increased
     Dosage: 100.000 MG, QD
     Route: 048
     Dates: start: 20251204, end: 20251206
  2. ISOSORBIDE MONONITRATE [Suspect]
     Active Substance: ISOSORBIDE MONONITRATE
     Indication: Blood pressure measurement
     Dosage: 50.000 MG, QD (SUSTAINED RELEASE)
     Route: 048
     Dates: start: 20251204, end: 20251206
  3. NIFEDIPINE [Suspect]
     Active Substance: NIFEDIPINE
     Indication: Blood pressure measurement
     Dosage: 20.000 MG, BID (SUSTAINED RELEASE TABLETS)
     Route: 048
     Dates: start: 20251204, end: 20251206
  4. CLOPIDOGREL [Concomitant]
     Active Substance: CLOPIDOGREL BISULFATE
     Indication: Antiplatelet therapy
     Dosage: UNK
     Route: 048
  5. ATORVASTATIN CALCIUM [Concomitant]
     Active Substance: ATORVASTATIN CALCIUM
     Indication: Lipid management
     Dosage: UNK
     Route: 065

REACTIONS (7)
  - Blood pressure decreased [Recovering/Resolving]
  - Dizziness [Unknown]
  - Cerebrovascular insufficiency [Unknown]
  - Vision blurred [Recovered/Resolved]
  - Memory impairment [Recovered/Resolved]
  - Gait disturbance [Recovered/Resolved]
  - Hypovolaemia [Unknown]

NARRATIVE: CASE EVENT DATE: 20251206
